FAERS Safety Report 5469643-0 (Version None)
Quarter: 2007Q3

REPORT INFORMATION
  Report Type: 
  Country: None (occurrence: None)
  Receive Date: 20070927
  Receipt Date: 20070926
  Transmission Date: 20080115
  Serious: Yes (Other)
  Sender: FDA-Public Use
  Company Number: A0684040A

PATIENT
  Sex: Female

DRUGS (1)
  1. AQUAFRESH EXTREME CLEAN TOOTHPASTE TUBE [Suspect]
     Indication: DENTAL CLEANING

REACTIONS (4)
  - COUGH [None]
  - STRESS URINARY INCONTINENCE [None]
  - THROAT IRRITATION [None]
  - VOMITING [None]
